FAERS Safety Report 4687773-8 (Version None)
Quarter: 2005Q2

REPORT INFORMATION
  Report Type: 
  Country: None (occurrence: None)
  Receive Date: 20050610
  Receipt Date: 20050530
  Transmission Date: 20051028
  Serious: Yes (Hospitalization)
  Sender: FDA-Public Use
  Company Number: FR-MERCK-0506USA00380

PATIENT
  Age: 84 Year
  Sex: Female

DRUGS (7)
  1. ZOCOR [Suspect]
     Route: 048
     Dates: end: 20050507
  2. CORDARONE [Suspect]
     Indication: ATRIAL FIBRILLATION
     Route: 048
     Dates: end: 20050507
  3. CORDARONE [Suspect]
     Indication: ATRIAL FLUTTER
     Route: 048
     Dates: end: 20050507
  4. ATARAX [Suspect]
     Route: 048
     Dates: end: 20050507
  5. PREVISCAN [Suspect]
     Route: 048
     Dates: end: 20050506
  6. TEMESTA [Suspect]
     Route: 048
     Dates: end: 20050507
  7. LESCOL [Suspect]
     Route: 048
     Dates: end: 20050507

REACTIONS (5)
  - DRUG INTERACTION [None]
  - FALL [None]
  - INTERNATIONAL NORMALISED RATIO INCREASED [None]
  - OVERDOSE [None]
  - SUBDURAL HAEMATOMA [None]
